FAERS Safety Report 6048905-2 (Version None)
Quarter: 2009Q1

REPORT INFORMATION
  Report Type: 
  Country: None (occurrence: None)
  Receive Date: 20090123
  Receipt Date: 20090115
  Transmission Date: 20090719
  Serious: Yes (Hospitalization)
  Sender: FDA-Public Use
  Company Number: FR-EISAI MEDIAL RESEARCH-E3810-02480-SPO-FR

PATIENT
  Sex: Male

DRUGS (12)
  1. RABEPRAZOLE SODIUM [Suspect]
     Indication: OESOPHAGITIS
     Dosage: UNKNOWN
     Route: 048
     Dates: start: 20040101
  2. MULTIHANCE [Suspect]
     Indication: NUCLEAR MAGNETIC RESONANCE IMAGING
     Route: 042
     Dates: start: 20081127
  3. ANAFRANIL [Suspect]
     Indication: DEPRESSION
     Dates: start: 19980101
  4. TRANXENE [Suspect]
     Indication: DEPRESSION
     Route: 048
  5. ADRIBLASTINE [Concomitant]
     Dates: start: 20081124, end: 20081124
  6. ADRIBLASTINE [Concomitant]
     Dates: start: 20081104, end: 20081104
  7. CARDIOXANE [Concomitant]
     Indication: HODGKIN'S DISEASE
     Dates: start: 20081124, end: 20081124
  8. CARDIOXANE [Concomitant]
     Dates: start: 20081104, end: 20081104
  9. BLEOMYCIN SULFATE [Concomitant]
     Indication: HODGKIN'S DISEASE
     Dates: start: 20081124, end: 20081124
  10. BLEOMYCIN SULFATE [Concomitant]
     Dates: start: 20081104, end: 20081104
  11. VINBLASTINE SULFATE [Concomitant]
     Indication: HODGKIN'S DISEASE
     Dosage: UNKNOWN
     Dates: start: 20081124, end: 20081124
  12. VINBLASTINE SULFATE [Concomitant]
     Dosage: UNKNOWN
     Dates: start: 20081104, end: 20081104

REACTIONS (3)
  - HYPOTENSION [None]
  - TACHYCARDIA [None]
  - VOMITING [None]
